FAERS Safety Report 8076809-2 (Version None)
Quarter: 2011Q4

REPORT INFORMATION
  Report Type: 
  Country: None (occurrence: None)
  Receive Date: 20111221
  Receipt Date: 20101216
  Transmission Date: 20120403
  Serious: Yes (Death)
  Sender: FDA-Public Use
  Company Number: PHHY2009US66574

PATIENT
  Sex: Male

DRUGS (1)
  1. EXJADE [Suspect]
     Dosage: 500 MG

REACTIONS (3)
  - BONE MARROW FAILURE [None]
  - NEOPLASM MALIGNANT [None]
  - DIZZINESS [None]
